FAERS Safety Report 4422886-7 (Version None)
Quarter: 2004Q3

REPORT INFORMATION
  Report Type: 
  Country: None (occurrence: None)
  Receive Date: 20040811
  Receipt Date: 20040804
  Transmission Date: 20050211
  Serious: Yes (Hospitalization)
  Sender: FDA-Public Use
  Company Number: JP-BRISTOL-MYERS SQUIBB COMPANY-12663126

PATIENT
  Age: 46 Year
  Sex: Male

DRUGS (8)
  1. STOCRIN [Suspect]
     Indication: HIV INFECTION
     Dosage: THERAPY DISCONTINUED 05-AUG-2003; RE-STARTED 02-SEP-2003 THROUGH 31-MAR-2004.
     Route: 048
     Dates: start: 20020730, end: 20040331
  2. VIDEX EC [Suspect]
     Indication: HIV INFECTION
     Route: 048
     Dates: start: 20020730, end: 20030805
  3. ZERIT [Suspect]
     Indication: HIV INFECTION
     Route: 048
     Dates: start: 20020130, end: 20030805
  4. EPIVIR [Concomitant]
     Dosage: THERAPY DISCONTINUED 29-JUL-2002; RE-STARTED-300 MG-02-SEP-2003 THROUGH 31-MAR-2004.
     Route: 048
     Dates: start: 20020124, end: 20040331
  5. ZIAGEN [Concomitant]
     Route: 048
     Dates: start: 20030902, end: 20040331
  6. CROSS EIGHT M [Concomitant]
     Dates: start: 20020401, end: 20040331
  7. ALBUMIN (HUMAN) [Concomitant]
     Dates: start: 20030122, end: 20030126
  8. LANTUS [Concomitant]
     Dates: start: 20030122, end: 20030126

REACTIONS (1)
  - LACTIC ACIDOSIS [None]
